FAERS Safety Report 12066413 (Version 1)
Quarter: 2016Q1

REPORT INFORMATION
  Report Type: Report from Study
  Country: US (occurrence: US)
  Receive Date: 20160211
  Receipt Date: 20160211
  Transmission Date: 20160526
  Serious: No
  Sender: FDA-Public Use
  Company Number: US-ABBVIE-16K-163-1531222-00

PATIENT
  Age: 53 Year
  Sex: Female

DRUGS (1)
  1. HUMIRA [Suspect]
     Active Substance: ADALIMUMAB
     Indication: CROHN^S DISEASE
     Route: 058
     Dates: start: 20151226, end: 20151226

REACTIONS (3)
  - Injection site pain [Recovered/Resolved]
  - Vision blurred [Recovered/Resolved]
  - Headache [Recovered/Resolved]

NARRATIVE: CASE EVENT DATE: 20151226
